FAERS Safety Report 24870458 (Version 1)
Quarter: 2025Q1

REPORT INFORMATION
  Report Type: Spontaneous
  Country: US (occurrence: None)
  Receive Date: 20250121
  Receipt Date: 20250121
  Transmission Date: 20250409
  Serious: Yes (Life-Threatening)
  Sender: FDA-CTU
  Company Number: None

PATIENT
  Age: 45 Year
  Sex: Female
  Weight: 83.25 kg

DRUGS (9)
  1. ZEPBOUND [Suspect]
     Active Substance: TIRZEPATIDE
     Indication: Obesity
     Route: 050
     Dates: start: 20241001, end: 20250120
  2. ARMOUR THYROID [Concomitant]
     Active Substance: THYROID, PORCINE
  3. LIOTHYRONINE [Concomitant]
     Active Substance: LIOTHYRONINE
  4. ALPRAZOLAM [Concomitant]
     Active Substance: ALPRAZOLAM
  5. VITAMIN B12 [Concomitant]
     Active Substance: CYANOCOBALAMIN
  6. VITAMIN D3 [Concomitant]
     Active Substance: CHOLECALCIFEROL
  7. HERBALS\TURMERIC [Concomitant]
     Active Substance: HERBALS\TURMERIC
  8. AZO cranberry supplments [Concomitant]
  9. MAGNESIUM CITRATE [Concomitant]
     Active Substance: MAGNESIUM CITRATE

REACTIONS (8)
  - Mental status changes [None]
  - Mood altered [None]
  - Anhedonia [None]
  - Anxiety [None]
  - Fear [None]
  - Aggression [None]
  - Suicidal ideation [None]
  - Feeling of despair [None]

NARRATIVE: CASE EVENT DATE: 20250119
